FAERS Safety Report 6386091-X (Version None)
Quarter: 2009Q4

REPORT INFORMATION
  Report Type: 
  Country: None (occurrence: None)
  Receive Date: 20091002
  Receipt Date: 20081210
  Transmission Date: 20100525
  Serious: No
  Sender: FDA-Public Use
  Company Number: US-ASTRAZENECA-2008UW27715

PATIENT
  Age: 54 Year
  Sex: Female
  Weight: 72.6 kg

DRUGS (3)
  1. ARIMIDEX [Suspect]
     Indication: BREAST CANCER
     Route: 048
     Dates: start: 20080901
  2. VITAMIN D [Concomitant]
  3. CALCIUM [Concomitant]

REACTIONS (5)
  - DYSURIA [None]
  - INCREASED APPETITE [None]
  - VAGINAL INFLAMMATION [None]
  - VULVOVAGINAL DRYNESS [None]
  - WEIGHT INCREASED [None]
